FAERS Safety Report 11982823 (Version 1)
Quarter: 2016Q1

REPORT INFORMATION
  Report Type: Spontaneous
  Country: US (occurrence: US)
  Receive Date: 20160201
  Receipt Date: 20160201
  Transmission Date: 20160526
  Serious: No
  Sender: FDA-Public Use
  Company Number: US-WATSON-2015-23460

PATIENT
  Sex: Male

DRUGS (1)
  1. CIPROFLOXACIN (WATSON LABORATORIES) [Suspect]
     Active Substance: CIPROFLOXACIN
     Indication: CATARACT OPERATION
     Route: 047

REACTIONS (1)
  - Anxiety [Unknown]
